FAERS Safety Report 7737943-7 (Version None)
Quarter: 2011Q3

REPORT INFORMATION
  Report Type: 
  Country: None (occurrence: None)
  Receive Date: 20110908
  Receipt Date: 20110907
  Transmission Date: 20111222
  Serious: Yes (Death)
  Sender: FDA-Public Use
  Company Number: PHHY2011DE75109

PATIENT
  Sex: Male
  Weight: 88 kg

DRUGS (4)
  1. ALLOPURINOL [Concomitant]
     Indication: HYPERURICAEMIA
     Dosage: 100 MG, UNK
     Route: 048
  2. CIPROFLOXACIN [Concomitant]
  3. EXJADE [Suspect]
     Indication: ACUTE MYELOID LEUKAEMIA
  4. EXJADE [Suspect]
     Indication: MYELODYSPLASTIC SYNDROME
     Dosage: 500 MG, QD
     Route: 048
     Dates: start: 20110503

REACTIONS (3)
  - DEATH [None]
  - ESCHERICHIA URINARY TRACT INFECTION [None]
  - DRUG RESISTANCE [None]
